FAERS Safety Report 8954189 (Version 4)
Quarter: 2013Q1

REPORT INFORMATION
  Report Type: Report from Study
  Country: US (occurrence: US)
  Receive Date: 20121207
  Receipt Date: 20130313
  Transmission Date: 20140127
  Serious: Yes (Hospitalization, Other)
  Sender: FDA-Public Use
  Company Number: US-BAYER-2012-125995

PATIENT
  Age: 75 Year
  Sex: Female
  Weight: 111.11 kg

DRUGS (23)
  1. NEXAVAR [Suspect]
     Indication: HEPATIC CANCER
     Dosage: 2 TABLETS TWICE DAILY
     Route: 048
     Dates: start: 20121118, end: 20121205
  2. CALCIUM D [Concomitant]
     Dosage: 1 DAILY WITH MEAL
  3. NEXIUM [Concomitant]
     Dosage: 1 CAPSULE TWICE DAILY BEFORE MEAL
  4. LASIX [FUROSEMIDE] [Concomitant]
     Dosage: 80 MG, QD
  5. MORPHINE [Concomitant]
     Dosage: 2 TABLETS EVERY 12 HOURS
     Route: 048
  6. INSULIN [INSULIN] [Concomitant]
     Dosage: 40 UNITS EVENING
  7. POTASSIUM CHLORIDE [Concomitant]
     Dosage: 2 TABLETS DAILY WITH MEAL
  8. SENNA PLUS [DOCUSATE SODIUM,SENNOSIDE A+B] [Concomitant]
     Dosage: 2 TABLETS TWICE A DAY
     Route: 048
  9. ONGLYZA [Concomitant]
     Dosage: 0.5 TABLET ONCE A DAY
     Route: 048
  10. METHYLPHENIDATE [Concomitant]
     Dosage: 10 MG, QD
     Route: 048
  11. LIPITOR [Concomitant]
     Dosage: 40 MG, QD
     Route: 048
  12. CYMBALTA [Concomitant]
     Dosage: 90 MG, QD
     Route: 048
  13. ZETIA [Concomitant]
     Dosage: 10 MG, QD
     Route: 048
  14. FLONASE [Concomitant]
     Dosage: 2 SPRAYS ONCE A DAY IN EACH NOSTRIL
     Route: 045
  15. FERROUS SULFATE [Concomitant]
     Dosage: 325 MG, QD WITH MEAL
     Route: 048
  16. SYNTHROID [Concomitant]
     Dosage: 1 TABLET EVERY DAY BEFORE BREAKFAST
     Route: 048
  17. MAG-OX [Concomitant]
     Dosage: 400 MG, QD EVERY EVENNING WITH MEAL
     Route: 048
  18. ZAROXOLYN [Concomitant]
     Dosage: 2.5 MG, QD
     Route: 048
  19. PREDNISONE [Concomitant]
     Dosage: 10 MG, QD
     Route: 048
  20. REQUIP [Concomitant]
     Dosage: 3 MG, BID (1.5 TABLET 2 TIMES A DAY)
     Route: 048
  21. VITAMIN D3 [Concomitant]
     Dosage: 1000 IU, QD
     Route: 048
  22. WARFARIN [Concomitant]
     Dosage: 5 MG - MON-WED-FRI / 6 MG SUN-TUES-THURS-SAT
  23. ZOFRAN [Concomitant]
     Indication: NAUSEA
     Dosage: 4 MG EVERY 6 HOURS

REACTIONS (6)
  - Asthenia [Not Recovered/Not Resolved]
  - Fall [None]
  - Blood pressure increased [Recovering/Resolving]
  - Heart rate increased [Recovering/Resolving]
  - Blood glucose increased [Not Recovered/Not Resolved]
  - Constipation [Not Recovered/Not Resolved]
